FAERS Safety Report 5947529-2 (Version None)
Quarter: 2008Q4

REPORT INFORMATION
  Report Type: 
  Country: None (occurrence: None)
  Receive Date: 20081110
  Receipt Date: 20081027
  Transmission Date: 20090506
  Serious: Yes (Other)
  Sender: FDA-Public Use
  Company Number: DE-GENENTECH-270957

PATIENT
  Sex: Male

DRUGS (5)
  1. BEVACIZUMAB [Suspect]
     Indication: COLORECTAL CANCER
     Dosage: 7.5 MG/KG, Q3W
     Route: 042
     Dates: start: 20080813, end: 20081016
  2. CAPECITABINE [Suspect]
     Indication: COLORECTAL CANCER
     Dosage: 1700 MG/M2, D1-14/Q3W
     Route: 048
     Dates: start: 20080813, end: 20081016
  3. OXALIPLATIN [Suspect]
     Indication: COLORECTAL CANCER
     Dosage: 100 MG/M2, Q3W
     Route: 042
     Dates: start: 20080813, end: 20081016
  4. IMATINIB MESYLATE [Suspect]
     Indication: COLORECTAL CANCER
     Dosage: 300 MG, QD
     Route: 048
     Dates: start: 20080813, end: 20081016
  5. IRINOTECAN HYDROCHLORIDE [Suspect]
     Indication: DRUG USE FOR UNKNOWN INDICATION
     Route: 065

REACTIONS (1)
  - AORTIC VALVE INCOMPETENCE [None]
